FAERS Safety Report 5988147-X (Version None)
Quarter: 2008Q4

REPORT INFORMATION
  Report Type: 
  Country: None (occurrence: None)
  Receive Date: 20081208
  Receipt Date: 20081208
  Transmission Date: 20090506
  Serious: Yes (Death, Life-Threatening, Hospitalization)
  Sender: FDA-Public Use
  Company Number: None

PATIENT
  Age: 34 Year
  Sex: Female

DRUGS (1)
  1. NUVARING [Suspect]
     Dates: start: 20081001, end: 20081206

REACTIONS (5)
  - CEREBRAL THROMBOSIS [None]
  - HEADACHE [None]
  - INCOHERENT [None]
  - NECK PAIN [None]
  - NERVOUS SYSTEM DISORDER [None]
